FAERS Safety Report 22324887 (Version 1)
Quarter: 2023Q2

REPORT INFORMATION
  Report Type: Spontaneous
  Country: DE (occurrence: DE)
  Receive Date: 20230516
  Receipt Date: 20230516
  Transmission Date: 20230721
  Serious: Yes (Hospitalization, Other)
  Sender: FDA-Public Use
  Company Number: DE-AMK-265596

PATIENT
  Age: 86 Year
  Sex: Female

DRUGS (13)
  1. TAVOR (LORAZEPAM) [Suspect]
     Active Substance: LORAZEPAM
     Indication: Sleep disorder
     Dosage: 2MG, 3X/DAY (EVERY 8 HOURS)
     Dates: start: 202202
  2. TAVOR (LORAZEPAM) [Suspect]
     Active Substance: LORAZEPAM
     Dosage: UNK (HIGH DOSED)
  3. CHOLECALCIFEROL [Concomitant]
     Active Substance: CHOLECALCIFEROL
     Indication: Prophylaxis
     Dosage: 1DF, 1X/DAY (1-0-0)
     Route: 048
     Dates: start: 2019
  4. RAMIPRIL [Concomitant]
     Active Substance: RAMIPRIL
     Indication: Hypertension
     Dosage: 5 MG, 1X/DAY (1-0-0)
     Route: 048
     Dates: start: 2022
  5. QUETIAPINE [Concomitant]
     Active Substance: QUETIAPINE
     Indication: Sleep disorder
     Dosage: 100 MG, 1X/DAY
     Route: 048
     Dates: start: 20230223
  6. PANTOPRAZOLE [Concomitant]
     Active Substance: PANTOPRAZOLE
     Indication: Gastrooesophageal reflux disease
     Dosage: 40 MG, 1X/DAY
     Route: 048
     Dates: start: 2018
  7. LACTULOSE [Concomitant]
     Active Substance: LACTULOSE
     Indication: Constipation
     Dosage: 15 ML
     Route: 048
     Dates: start: 2020
  8. METAMIZOL SODIUM [Concomitant]
     Active Substance: METAMIZOL SODIUM
     Indication: Pain
     Dosage: UP TO 4X1
     Route: 048
     Dates: start: 2021
  9. DAPAGLIFLOZIN [Concomitant]
     Active Substance: DAPAGLIFLOZIN
     Indication: Cardiac failure
     Dosage: 10 MG, 1X/DAY
     Route: 048
     Dates: start: 20220523
  10. DAPAGLIFLOZIN [Concomitant]
     Active Substance: DAPAGLIFLOZIN
     Dosage: UNK (LAST DOSE TITRATION)
     Dates: start: 20220612
  11. DIGITOXIN [Concomitant]
     Active Substance: DIGITOXIN
     Indication: Cardiac failure
     Dosage: 1 DF, 1X/DAY
     Route: 048
     Dates: start: 2019
  12. DIGITOXIN [Concomitant]
     Active Substance: DIGITOXIN
     Dosage: UNK, DAILY (LAST DOSE CHANGE TO DAILY)
     Dates: start: 2022
  13. BISOPROLOL [Concomitant]
     Active Substance: BISOPROLOL
     Indication: Cardiac failure
     Dosage: 2.5 MG, 1X/DAY
     Route: 048
     Dates: start: 2019

REACTIONS (8)
  - Disturbance in attention [Not Recovered/Not Resolved]
  - Personality change [Recovering/Resolving]
  - Delirium [Recovering/Resolving]
  - Withdrawal syndrome [Recovering/Resolving]
  - Fall [Recovering/Resolving]
  - Somnolence [Recovering/Resolving]
  - Intentional overdose [Unknown]
  - Intentional product use issue [Unknown]

NARRATIVE: CASE EVENT DATE: 20230415
